FAERS Safety Report 4732968-8 (Version None)
Quarter: 2005Q3

REPORT INFORMATION
  Report Type: 
  Country: None (occurrence: None)
  Receive Date: 20050801
  Receipt Date: 20050714
  Transmission Date: 20060218
  Serious: Yes (Hospitalization)
  Sender: FDA-Public Use
  Company Number: 215472

PATIENT
  Age: 77 Year
  Sex: Female
  Weight: 81.5 kg

DRUGS (21)
  1. HERCEPTIN [Suspect]
     Indication: BREAST CANCER
     Dosage: 486 MG, INTRAVENOUS
     Route: 042
     Dates: start: 20050407
  2. DOCETAXEL (DOCETAXEL) [Suspect]
     Indication: BREAST CANCER
     Dosage: 109 MG, INTRAVENOUS
     Route: 042
     Dates: start: 20050408
  3. CARBOPLATIN [Suspect]
     Indication: BREAST CANCER
     Dosage: 382 MG, INTRAVENOUS
     Route: 042
     Dates: start: 20050408
  4. LEVOFLOXACIN [Concomitant]
  5. QUINAPRIL HCL [Concomitant]
  6. FUROSEMIDE (FUROSEMIDE) [Concomitant]
  7. LEVOTHYROXINE (LEVOTHYROXINE SODIUM) [Concomitant]
  8. VERAPAMIL [Concomitant]
  9. DULCOLAX [Concomitant]
  10. CETIRIZINE HCL [Concomitant]
  11. CALCIUM/VITAMIN D (CALCIUM NOS, CHOLECALCIFEROL) [Concomitant]
  12. LORAZEPAM [Concomitant]
  13. MOUTHWASH (MOUTHWASH NOS) [Concomitant]
  14. PRAMOCAINE (PRAMOXINE HYDROCHLORIDE) [Concomitant]
  15. DOCUSATE SODIUM (DOCUSATE SODIUM) [Concomitant]
  16. SENNA (SENNA) [Concomitant]
  17. BISACODYL (BISACODYL) [Concomitant]
  18. DEXAMETHASONE [Concomitant]
  19. GABAPENTIN [Concomitant]
  20. EPOIETIN (EPOIETIN NOS) [Concomitant]
  21. ACCUPRIL [Concomitant]

REACTIONS (16)
  - AGEUSIA [None]
  - BREAST INDURATION [None]
  - CARDIOMEGALY [None]
  - CHILLS [None]
  - COUGH [None]
  - CREPITATIONS [None]
  - DEHYDRATION [None]
  - FATIGUE [None]
  - HYPOAESTHESIA ORAL [None]
  - HYPOKALAEMIA [None]
  - NEUTROPENIA [None]
  - ORAL INTAKE REDUCED [None]
  - PULMONARY HYPERTENSION [None]
  - PYREXIA [None]
  - RALES [None]
  - RENAL FAILURE ACUTE [None]
